FAERS Safety Report 25047340 (Version 1)
Quarter: 2025Q1

REPORT INFORMATION
  Report Type: Spontaneous
  Country: US (occurrence: US)
  Receive Date: 20250306
  Receipt Date: 20250306
  Transmission Date: 20250409
  Serious: Yes (Other)
  Sender: PFIZER
  Company Number: US-PFIZER INC-202500049071

PATIENT
  Age: 71 Year
  Sex: Male
  Weight: 102.06 kg

DRUGS (13)
  1. DILTIAZEM HYDROCHLORIDE [Suspect]
     Active Substance: DILTIAZEM HYDROCHLORIDE
     Indication: Heart rate decreased
     Dosage: ONCE AT MIDNIGHT
     Dates: start: 2021
  2. LEVOTHYROXINE SODIUM [Suspect]
     Active Substance: LEVOTHYROXINE SODIUM
     Indication: Thyroid disorder
     Dosage: ONE TIME A DAY
  3. CLONIDINE [Suspect]
     Active Substance: CLONIDINE
     Indication: Hypertension
     Dosage: 0.2 FOUR TIMES A DAY
  4. CLONIDINE [Suspect]
     Active Substance: CLONIDINE
     Dosage: 3 TIMES
  5. CLONIDINE [Suspect]
     Active Substance: CLONIDINE
     Dosage: BACK UP TO 4 TIMES
  6. DOXAZOSIN [Suspect]
     Active Substance: DOXAZOSIN MESYLATE
     Indication: Blood pressure measurement
     Dosage: 8 MG, 2X/DAY
  7. ISOSORBIDE MONONITRATE [Suspect]
     Active Substance: ISOSORBIDE MONONITRATE
  8. FENOFIBRATE [Suspect]
     Active Substance: FENOFIBRATE
     Indication: Blood cholesterol
     Dosage: ONE TIME A DAY
  9. SERTRALINE [Suspect]
     Active Substance: SERTRALINE HYDROCHLORIDE
     Dosage: HALF A TABLET, TWICE A DAY
  10. OLMESARTAN [Suspect]
     Active Substance: OLMESARTAN
  11. TRESIBA [Suspect]
     Active Substance: INSULIN DEGLUDEC
     Indication: Diabetes mellitus
  12. HYDROCHLOROTHIAZIDE [Suspect]
     Active Substance: HYDROCHLOROTHIAZIDE
     Dosage: 12.5 ONCE A DAY
  13. NIACIN [Suspect]
     Active Substance: NIACIN
     Indication: Blood cholesterol

REACTIONS (14)
  - Eye operation [Unknown]
  - Ichthyosis [Recovering/Resolving]
  - Contraindicated product administered [Unknown]
  - Thrombosis [Not Recovered/Not Resolved]
  - Bradycardia [Not Recovered/Not Resolved]
  - Blood pressure diastolic increased [Not Recovered/Not Resolved]
  - Blister [Not Recovered/Not Resolved]
  - Constipation [Not Recovered/Not Resolved]
  - Dermatitis [Recovering/Resolving]
  - Fluid retention [Not Recovered/Not Resolved]
  - Lymphatic obstruction [Not Recovered/Not Resolved]
  - Oedema [Not Recovered/Not Resolved]
  - Rash [Not Recovered/Not Resolved]
  - Weight increased [Not Recovered/Not Resolved]

NARRATIVE: CASE EVENT DATE: 20250101
